FAERS Safety Report 20356789 (Version 1)
Quarter: 2022Q1

REPORT INFORMATION
  Report Type: Spontaneous
  Country: US (occurrence: None)
  Receive Date: 20220119
  Receipt Date: 20220119
  Transmission Date: 20220423
  Serious: Yes (Hospitalization)
  Sender: FDA-Public Use
  Company Number: None

PATIENT
  Age: 73 Year
  Sex: Male
  Weight: 81.9 kg

DRUGS (12)
  1. INLYTA [Suspect]
     Active Substance: AXITINIB
     Indication: Renal cancer stage IV
     Dosage: FREQUENCY : TWICE A DAY;?
     Route: 048
  2. ALBUTEROL SULFATE [Concomitant]
     Active Substance: ALBUTEROL SULFATE
  3. Atorvastatin Calcium Oral Tablet [Concomitant]
  4. Atropine Sulfate  PF [Concomitant]
  5. Advair Diskus Inhalation Aerosol [Concomitant]
  6. LASIX [Concomitant]
     Active Substance: FUROSEMIDE
  7. LISINOPRIL [Concomitant]
     Active Substance: LISINOPRIL
  8. TOPROL XL [Concomitant]
     Active Substance: METOPROLOL SUCCINATE
  9. MONTELUKAST [Concomitant]
     Active Substance: MONTELUKAST SODIUM
  10. Pred Forte Ophthalmic Suspension [Concomitant]
  11. CVS Nicotine Mouth/Throat Gum [Concomitant]
  12. LATANOPROST [Concomitant]
     Active Substance: LATANOPROST

REACTIONS (3)
  - Haematemesis [None]
  - Pneumonia [None]
  - COVID-19 [None]

NARRATIVE: CASE EVENT DATE: 20220109
